FAERS Safety Report 9603000 (Version 2)
Quarter: 2013Q4

REPORT INFORMATION
  Report Type: Spontaneous
  Country: FR (occurrence: FR)
  Receive Date: 20131007
  Receipt Date: 20131126
  Transmission Date: 20140711
  Serious: Yes (Death, Hospitalization, Congenital Anomaly)
  Sender: FDA-Public Use
  Company Number: FR-PFIZER INC-2013281971

PATIENT
  Sex: 0

DRUGS (2)
  1. ZOLOFT [Suspect]
     Indication: DEPRESSION
     Dosage: 50 MG, 1X/DAY
     Route: 064
     Dates: start: 20130611, end: 20130627
  2. DEROXAT [Suspect]
     Indication: DEPRESSION
     Dosage: 20 MG, 1X/DAY
     Route: 064
     Dates: start: 20130201, end: 20130610

REACTIONS (7)
  - Maternal exposure during pregnancy [Fatal]
  - Foetal malformation [Fatal]
  - Cardiomegaly [Fatal]
  - Dysmorphism [Fatal]
  - Microphthalmos [Fatal]
  - Limb reduction defect [Fatal]
  - Ultrasound antenatal screen [Fatal]
